FAERS Safety Report 22620916 (Version 5)
Quarter: 2024Q4

REPORT INFORMATION
  Report Type: Spontaneous
  Country: US (occurrence: US)
  Receive Date: 20230620
  Receipt Date: 20241105
  Transmission Date: 20250114
  Serious: No
  Sender: PFIZER
  Company Number: US-PFIZER INC-PV202300093182

PATIENT
  Age: 92 Year
  Sex: Male

DRUGS (1)
  1. CIBINQO [Suspect]
     Active Substance: ABROCITINIB
     Dosage: 50 MG (CUT BACK ON JUST HALF TABLET)

REACTIONS (2)
  - Epistaxis [Unknown]
  - Intentional product misuse [Unknown]
